FAERS Safety Report 8581158-X (Version None)
Quarter: 2012Q3

REPORT INFORMATION
  Report Type: 
  Country: None (occurrence: None)
  Receive Date: 20120727
  Receipt Date: 20120713
  Transmission Date: 20120928
  Serious: Yes (Other)
  Sender: FDA-Public Use
  Company Number: JPI-P-021537

PATIENT
  Age: 53 Year
  Sex: Female

DRUGS (7)
  1. SIMVASTATIN [Concomitant]
  2. ATENOLOL [Concomitant]
  3. SERTRALINE HYDROCHLORIDE [Concomitant]
  4. METHYLPHENIDATE HCL [Concomitant]
  5. XYREM [Suspect]
     Indication: CATAPLEXY
     Dosage: 4.5 GM (2.25 GM, 2 IN 1 D), ORAL, ORAL; 8 GM (4 GM, 2 IN 1 D), ORAL
     Dates: start: 20120208, end: 20120301
  6. XYREM [Suspect]
     Indication: CATAPLEXY
     Dosage: 4.5 GM (2.25 GM, 2 IN 1 D), ORAL, ORAL; 8 GM (4 GM, 2 IN 1 D), ORAL
     Dates: start: 20040722
  7. VALSARTAN W/HYDROCOHLOROTHIAZIDE) [Concomitant]

REACTIONS (12)
  - FEELING ABNORMAL [None]
  - LETHARGY [None]
  - ABDOMINAL PAIN [None]
  - MALAISE [None]
  - CONSTIPATION [None]
  - DIARRHOEA [None]
  - FATIGUE [None]
  - INCREASED APPETITE [None]
  - VOMITING [None]
  - PYREXIA [None]
  - AUTOIMMUNE HEPATITIS [None]
  - CUSHINGOID [None]
